FAERS Safety Report 22799436 (Version 8)
Quarter: 2025Q1

REPORT INFORMATION
  Report Type: Spontaneous
  Country: US (occurrence: US)
  Receive Date: 20230808
  Receipt Date: 20250107
  Transmission Date: 20250409
  Serious: No
  Sender: PFIZER
  Company Number: US-PFIZER INC-PV202300113369

PATIENT
  Age: 77 Year
  Sex: Female
  Weight: 113.37 kg

DRUGS (3)
  1. BOSULIF [Suspect]
     Active Substance: BOSUTINIB MONOHYDRATE
     Indication: Chronic myeloid leukaemia
     Dosage: 300 MG, 1X/DAY [TAKE 3 TABS (100 MG) DAILY]
     Route: 048
  2. BOSULIF [Suspect]
     Active Substance: BOSUTINIB MONOHYDRATE
     Dosage: 100 MG, DAILY (1 TAB DAILY)
     Route: 048
  3. NEURONTIN [Concomitant]
     Active Substance: GABAPENTIN

REACTIONS (3)
  - Epistaxis [Unknown]
  - Dyspnoea [Unknown]
  - Intentional product use issue [Unknown]

NARRATIVE: CASE EVENT DATE: 20241227
